FAERS Safety Report 5971898-0 (Version None)
Quarter: 2008Q4

REPORT INFORMATION
  Report Type: 
  Country: None (occurrence: None)
  Receive Date: 20081124
  Receipt Date: 20081117
  Transmission Date: 20090506
  Serious: Yes (Death, Life-Threatening, Hospitalization)
  Sender: FDA-Public Use
  Company Number: 2008AL011811

PATIENT

DRUGS (1)
  1. LIDOCAINE HYDROCHLORIDE 2% [Suspect]

REACTIONS (8)
  - ARRHYTHMIA [None]
  - BRUGADA SYNDROME [None]
  - ELECTROCARDIOGRAM CHANGE [None]
  - GENE MUTATION [None]
  - PYREXIA [None]
  - SUDDEN CARDIAC DEATH [None]
  - SYNCOPE [None]
  - VENTRICULAR TACHYCARDIA [None]
